FAERS Safety Report 21704819 (Version 1)
Quarter: 2022Q4

REPORT INFORMATION
  Report Type: Report from Study
  Country: CA (occurrence: CA)
  Receive Date: 20221209
  Receipt Date: 20221209
  Transmission Date: 20230113
  Serious: Yes (Hospitalization)
  Sender: FDA-Public Use
  Company Number: CA-BAYER-2022A166526

PATIENT
  Sex: Male

DRUGS (1)
  1. EYLEA [Suspect]
     Active Substance: AFLIBERCEPT
     Indication: Diabetic retinal oedema
     Dosage: ONCE, SOLUTION FOR INJECTION, STRENGTH: 40MG/ML
     Dates: start: 20221012, end: 20221012

REACTIONS (3)
  - Blindness [Recovering/Resolving]
  - Eye irritation [Recovered/Resolved]
  - Metamorphopsia [Unknown]

NARRATIVE: CASE EVENT DATE: 20221012
